FAERS Safety Report 17679235 (Version 1)
Quarter: 2020Q2

REPORT INFORMATION
  Report Type: Spontaneous
  Country: DE (occurrence: DE)
  Receive Date: 20200417
  Receipt Date: 20200417
  Transmission Date: 20200714
  Serious: Yes (Hospitalization, Other)
  Sender: FDA-Public Use
  Company Number: DE-TEVA-2020-DE-1223869

PATIENT
  Age: 80 Year
  Sex: Male

DRUGS (8)
  1. RAMIPRIL. [Concomitant]
     Active Substance: RAMIPRIL
     Dosage: 10 MILLIGRAM DAILY;  1-0-1-0
  2. TORASEMID [Concomitant]
     Active Substance: TORSEMIDE
     Dosage: 10 MG, 0.5-0-0-0
  3. LEVETIRACETAM. [Concomitant]
     Active Substance: LEVETIRACETAM
     Dosage: 1000 MILLIGRAM DAILY;  0.5-0-0.5-0
  4. RIVAROXABAN [Suspect]
     Active Substance: RIVAROXABAN
     Dosage: 15 MILLIGRAM DAILY; 1-0-0-0
  5. TILIDINE/NALOXONE [Concomitant]
     Active Substance: NALOXONE HYDROCHLORIDE\TILIDINE HYDROCHLORIDE
     Dosage: 50|4 MG, 4X; 4 DF
  6. ATORVASTATIN [Concomitant]
     Active Substance: ATORVASTATIN
     Dosage: 20 MILLIGRAM DAILY; 0-0-0.5-0
  7. IBUPROFEN. [Suspect]
     Active Substance: IBUPROFEN
     Dosage: NK MG / WEEK, 1X,
  8. METOPROLOL. [Concomitant]
     Active Substance: METOPROLOL
     Dosage: 47.5 MG, 0.5-0-0.5-0

REACTIONS (3)
  - Haematochezia [Unknown]
  - Pallor [Unknown]
  - Anaemia [Unknown]
